FAERS Safety Report 17956433 (Version 1)
Quarter: 2020Q2

REPORT INFORMATION
  Report Type: Spontaneous
  Country: US (occurrence: US)
  Receive Date: 20200627
  Receipt Date: 20200627
  Transmission Date: 20200714
  Serious: Yes (Other)
  Sender: FDA-Public Use
  Company Number: None

PATIENT
  Age: 45 Year
  Sex: Female
  Weight: 58.06 kg

DRUGS (2)
  1. BETADINE [Suspect]
     Active Substance: POVIDONE-IODINE
  2. INPLANT FUNNEL [Suspect]
     Active Substance: DEVICE

REACTIONS (3)
  - Device related infection [None]
  - Incision site discharge [None]
  - Incision site impaired healing [None]

NARRATIVE: CASE EVENT DATE: 20200209
